FAERS Safety Report 4511506-9 (Version None)
Quarter: 2004Q4

REPORT INFORMATION
  Report Type: 
  Country: None (occurrence: None)
  Receive Date: 20041129
  Receipt Date: 20040903
  Transmission Date: 20050328
  Serious: Yes (Hospitalization)
  Sender: FDA-Public Use
  Company Number: US-BRISTOL-MYERS SQUIBB COMPANY-12692455

PATIENT
  Age: 18 Year
  Sex: Male

DRUGS (6)
  1. ARIPIPRAZOLE [Suspect]
     Indication: AGITATION
     Dosage: DOSING INITIATED 5 DAYS PRIOR TO HOSPITAL ADMISSION ON 03-JUN-2004.
     Dates: start: 20040529
  2. ARIPIPRAZOLE [Suspect]
     Indication: AGGRESSION
     Dosage: DOSING INITIATED 5 DAYS PRIOR TO HOSPITAL ADMISSION ON 03-JUN-2004.
     Dates: start: 20040529
  3. HALOPERIDOL [Concomitant]
  4. TRAZODONE HCL [Concomitant]
  5. BENZTROPINE MESYLATE [Concomitant]
  6. LORAZEPAM [Concomitant]

REACTIONS (3)
  - ALANINE AMINOTRANSFERASE INCREASED [None]
  - ASPARTATE AMINOTRANSFERASE INCREASED [None]
  - NEUROLEPTIC MALIGNANT SYNDROME [None]
